FAERS Safety Report 8380300-3 (Version None)
Quarter: 2012Q2

REPORT INFORMATION
  Report Type: 
  Country: None (occurrence: None)
  Receive Date: 20120523
  Receipt Date: 20120516
  Transmission Date: 20120825
  Serious: Yes (Hospitalization)
  Sender: FDA-Public Use
  Company Number: DK-JNJFOC-20120206542

PATIENT
  Sex: Female
  Weight: 80 kg

DRUGS (5)
  1. HUMIRA [Suspect]
     Indication: RHEUMATOID ARTHRITIS
     Dates: start: 20110309, end: 20110321
  2. UNIKALK FORTE [Concomitant]
  3. DIPROSPAN [Concomitant]
  4. IBUPROFEN [Concomitant]
  5. SIMPONI [Suspect]
     Indication: RHEUMATOID ARTHRITIS
     Route: 058
     Dates: start: 20111117

REACTIONS (1)
  - MALIGNANT MELANOMA [None]
